FAERS Safety Report 25110943 (Version 1)
Quarter: 2025Q1

REPORT INFORMATION
  Report Type: Other
  Country: US (occurrence: US)
  Receive Date: 20250324
  Receipt Date: 20250324
  Transmission Date: 20250409
  Serious: Yes (Life-Threatening, Hospitalization, Other)
  Sender: ALVOGEN
  Company Number: US-ALVOGEN-2025096488

PATIENT
  Age: 67 Year
  Sex: Female

DRUGS (9)
  1. LEVOTHYROXINE [Suspect]
     Active Substance: LEVOTHYROXINE
     Indication: Suicide attempt
     Route: 048
  2. AMLODIPINE [Suspect]
     Active Substance: AMLODIPINE BESYLATE
     Indication: Suicide attempt
     Route: 048
  3. LEVETIRACETAM [Suspect]
     Active Substance: LEVETIRACETAM
     Indication: Suicide attempt
     Route: 048
  4. MELATONIN [Suspect]
     Active Substance: MELATONIN
     Indication: Suicide attempt
     Route: 048
  5. METOPROLOL [Suspect]
     Active Substance: METOPROLOL
     Indication: Suicide attempt
     Route: 048
  6. MIRTAZAPINE [Suspect]
     Active Substance: MIRTAZAPINE
     Indication: Suicide attempt
     Route: 048
  7. PANTOPRAZOLE [Suspect]
     Active Substance: PANTOPRAZOLE
     Indication: Suicide attempt
     Route: 048
  8. QUETIAPINE [Suspect]
     Active Substance: QUETIAPINE
     Indication: Suicide attempt
     Route: 048
  9. QUETIAPINE [Suspect]
     Active Substance: QUETIAPINE
     Indication: Suicide attempt
     Route: 048

REACTIONS (11)
  - Vasoplegia syndrome [Recovering/Resolving]
  - Suicide attempt [Unknown]
  - Hypoxia [Recovering/Resolving]
  - Respiratory failure [Recovering/Resolving]
  - Mental status changes [Recovering/Resolving]
  - Metabolic acidosis [Recovering/Resolving]
  - Blood creatinine increased [Recovering/Resolving]
  - Lethargy [Recovering/Resolving]
  - Haemodynamic instability [Recovering/Resolving]
  - Intentional product misuse [Unknown]
  - Intentional overdose [Unknown]
